FAERS Safety Report 7918713-3 (Version None)
Quarter: 2011Q4

REPORT INFORMATION
  Report Type: 
  Country: None (occurrence: None)
  Receive Date: 20111116
  Receipt Date: 20111107
  Transmission Date: 20120403
  Serious: Yes (Hospitalization)
  Sender: FDA-Public Use
  Company Number: US-ROCHE-1012285

PATIENT

DRUGS (3)
  1. ERLOTINIB HYDROCHLORIDE [Suspect]
     Indication: PRODUCT USED FOR UNKNOWN INDICATION
     Dosage: CYCLE 1 ONLY OSI-774 STARTS ON DAY 3, CYCLE = 28 DAYS, QD
     Route: 048
     Dates: start: 20030630
  2. PACLITAXEL [Suspect]
     Indication: PRODUCT USED FOR UNKNOWN INDICATION
     Dosage: 1HR ON DAY 1 QW FOR 3 WEEKS, EVERY 28 DAYS
     Route: 042
     Dates: start: 20030630
  3. HERCEPTIN [Suspect]
     Indication: PRODUCT USED FOR UNKNOWN INDICATION
     Dosage: VER 30 MIN ON DAY 1QW FOR 3 WEEKS, EVERY 28 DAYS
     Route: 042
     Dates: start: 20030630

REACTIONS (1)
  - LOWER GASTROINTESTINAL HAEMORRHAGE [None]
